FAERS Safety Report 4344717-6 (Version None)
Quarter: 2004Q2

REPORT INFORMATION
  Report Type: 
  Country: None (occurrence: None)
  Receive Date: 20040420
  Receipt Date: 20040406
  Transmission Date: 20050107
  Serious: Yes (Other)
  Sender: FDA-Public Use
  Company Number: US-JNJFOC-20040105593

PATIENT
  Age: 26 Year
  Sex: Male

DRUGS (2)
  1. REMICADE [Suspect]
     Indication: CROHN'S DISEASE
     Dosage: INTRAVENOUS
     Route: 042
  2. PREDNISONE [Suspect]
     Indication: CROHN'S DISEASE

REACTIONS (1)
  - DIABETES MELLITUS [None]
